FAERS Safety Report 9076783 (Version 1)
Quarter: 2013Q1

REPORT INFORMATION
  Report Type: Report from Study
  Country: US (occurrence: US)
  Receive Date: 20130129
  Receipt Date: 20130129
  Transmission Date: 20140127
  Serious: Yes (Other)
  Sender: FDA-Public Use
  Company Number: US-ABBOTT-12P-163-0938843-00

PATIENT
  Age: 72 Year
  Sex: Female

DRUGS (13)
  1. HUMIRA 40 MG/ 0.8 ML PRE-FILLED SYRINGE [Suspect]
     Indication: PSORIASIS
     Dates: start: 201007, end: 201201
  2. HUMIRA 40 MG/ 0.8 ML PRE-FILLED SYRINGE [Suspect]
     Dates: start: 20120204
  3. CELEBREX [Concomitant]
     Indication: ARTHRITIS
  4. PREDNISONE [Concomitant]
     Indication: PAPILLOEDEMA
     Dosage: EVERY DAY
  5. PREDNISONE [Concomitant]
     Indication: INFLAMMATION
  6. PREDNISONE [Concomitant]
     Indication: ARTHRITIS
  7. ALLEGRA [Concomitant]
     Indication: HYPERSENSITIVITY
  8. MICARDIS [Concomitant]
     Indication: HYPERTENSION
     Dosage: EVERY DAY
  9. FLEXERIL [Concomitant]
     Indication: MYALGIA
     Dosage: 1-3 DAY
  10. PEPCID [Concomitant]
     Indication: SUPPLEMENTATION THERAPY
     Dosage: USUALLY ONLY TAKES 1 40MG EVERY DAY
  11. PREMARIN [Concomitant]
     Indication: HORMONE LEVEL ABNORMAL
     Dosage: .625 EVERYDAY
  12. VITAMIN E [Concomitant]
     Indication: SUPPLEMENTATION THERAPY
  13. MULTIVITAMINS [Concomitant]
     Indication: PRODUCT USED FOR UNKNOWN INDICATION
     Dosage: EVERY DAY

REACTIONS (3)
  - Tooth abscess [Unknown]
  - Sinusitis [Recovered/Resolved]
  - Malaise [Unknown]
